FAERS Safety Report 6999470-4 (Version None)
Quarter: 2010Q3

REPORT INFORMATION
  Report Type: 
  Country: None (occurrence: None)
  Receive Date: 20100920
  Receipt Date: 20070627
  Transmission Date: 20110219
  Serious: Yes (Other)
  Sender: FDA-Public Use
  Company Number: US-ASTRAZENECA-2007UW09456

PATIENT
  Sex: Female
  Weight: 98.9 kg

DRUGS (24)
  1. SEROQUEL [Suspect]
     Indication: BIPOLAR DISORDER
     Route: 048
     Dates: start: 20040101
  2. SEROQUEL [Suspect]
     Indication: DEPRESSION
     Route: 048
     Dates: start: 20040101
  3. SEROQUEL [Suspect]
     Indication: ANXIETY
     Route: 048
     Dates: start: 20040101
  4. SEROQUEL [Suspect]
     Dosage: 100 MG DISPENSED, TAKE 1 OR 2 TABLETS BY MOUTH AT BEDTIME
     Route: 048
     Dates: start: 20050401
  5. SEROQUEL [Suspect]
     Dosage: 100 MG DISPENSED, TAKE 1 OR 2 TABLETS BY MOUTH AT BEDTIME
     Route: 048
     Dates: start: 20050401
  6. SEROQUEL [Suspect]
     Dosage: 100 MG DISPENSED, TAKE 1 OR 2 TABLETS BY MOUTH AT BEDTIME
     Route: 048
     Dates: start: 20050401
  7. CLOZARIL [Concomitant]
  8. HALDOL [Concomitant]
  9. NAVANE [Concomitant]
  10. RISPERDAL [Concomitant]
  11. THORAZINE [Concomitant]
  12. OLANZAPINE [Concomitant]
  13. CYMBALTA [Concomitant]
     Route: 048
     Dates: start: 20050304
  14. FUROSEMIDE [Concomitant]
     Route: 048
     Dates: start: 20050311
  15. CLONIDINE [Concomitant]
     Dates: start: 20050311
  16. HYDROCOD/ APAP [Concomitant]
     Dosage: 10/650 MG TAKE 1 TABLET BY MOTH FOUR TIMES DAILY
     Route: 048
     Dates: start: 19960201
  17. LEXAPRO [Concomitant]
     Dates: start: 20050318
  18. KLONOPIN [Concomitant]
     Dosage: 3 MG TO 4 MG
     Route: 048
     Dates: start: 20020401
  19. POTASSIUM CHLORIDE [Concomitant]
     Dosage: 10 MEQ 1 TABLET DAILY
     Route: 048
     Dates: start: 20050401
  20. LAMICTAL [Concomitant]
     Dosage: 2 TABLETS AT BED TIME
     Dates: start: 20050401
  21. LISINOPRIL [Concomitant]
     Dates: start: 20050401
  22. COUMADIN [Concomitant]
     Indication: DEEP VEIN THROMBOSIS
     Dates: start: 20020401
  23. COUMADIN [Concomitant]
     Indication: PULMONARY EMBOLISM
     Dates: start: 20020401
  24. TOPAMAX [Concomitant]
     Dosage: 25 MG TWO QAM THREE QPM
     Route: 048
     Dates: start: 20020401

REACTIONS (2)
  - DIABETES MELLITUS [None]
  - DIABETIC COMA [None]
